FAERS Safety Report 9191294 (Version 1)
Quarter: 2013Q1

REPORT INFORMATION
  Report Type: Spontaneous
  Country: US (occurrence: US)
  Receive Date: 20130326
  Receipt Date: 20130326
  Transmission Date: 20140127
  Serious: No
  Sender: FDA-Public Use
  Company Number: US-ASTRAZENECA-2003UW03967

PATIENT
  Age: 68 Year
  Sex: Male
  Weight: 71.2 kg

DRUGS (4)
  1. NEXIUM [Suspect]
     Indication: GASTROOESOPHAGEAL REFLUX DISEASE
     Route: 048
     Dates: start: 2002, end: 20030325
  2. SYMBICORT [Suspect]
     Indication: ASTHMA
     Dosage: 2 PUFFS BID
     Route: 055
     Dates: start: 20130218
  3. SLEEPINAL [Concomitant]
  4. LISTERINE [Concomitant]

REACTIONS (2)
  - Diarrhoea [Recovering/Resolving]
  - Glossodynia [Unknown]
